FAERS Safety Report 4517681-4 (Version None)
Quarter: 2004Q4

REPORT INFORMATION
  Report Type: 
  Country: None (occurrence: None)
  Receive Date: 20041203
  Receipt Date: 20041122
  Transmission Date: 20050328
  Serious: Yes (Other)
  Sender: FDA-Public Use
  Company Number: 200413475EU

PATIENT
  Sex: Female

DRUGS (5)
  1. CLOMID [Suspect]
     Route: 048
     Dates: start: 20041105, end: 20041109
  2. AUGMENTIN '125' [Concomitant]
     Route: 048
  3. ADVIL [Concomitant]
     Route: 048
  4. BISOLVON [Concomitant]
     Route: 048
     Dates: start: 20041103, end: 20041107
  5. DELTACORTRIL [Concomitant]
     Route: 048
     Dates: start: 20041108

REACTIONS (12)
  - AMNESIA [None]
  - BALANCE DISORDER [None]
  - CRYING [None]
  - DEPRESSION [None]
  - DIZZINESS [None]
  - EMOTIONAL DISORDER [None]
  - FATIGUE [None]
  - NAUSEA [None]
  - PARAESTHESIA [None]
  - TREMOR [None]
  - VISION BLURRED [None]
  - VOMITING [None]
